FAERS Safety Report 5869883-2 (Version None)
Quarter: 2008Q3

REPORT INFORMATION
  Report Type: 
  Country: None (occurrence: None)
  Receive Date: 20080904
  Receipt Date: 20080821
  Transmission Date: 20090109
  Serious: Yes (Other)
  Sender: FDA-Public Use
  Company Number: PHEH2008US07408

PATIENT
  Age: 55 Year
  Sex: Male

DRUGS (7)
  1. ZOMETA [Suspect]
     Indication: METASTASES TO BONE
     Dosage: 4 MG, ONCE/SINGLE
     Route: 042
     Dates: start: 20080730
  2. CISPLATIN [Concomitant]
  3. AVASTIN [Concomitant]
  4. EMEND [Concomitant]
  5. HYDROCHLOROTHIAZIDE [Concomitant]
  6. VIAGRA [Concomitant]
  7. ASPIRIN [Concomitant]

REACTIONS (8)
  - ACUTE PHASE REACTION [None]
  - BLISTER [None]
  - ERYTHEMA [None]
  - PAIN IN EXTREMITY [None]
  - PARAESTHESIA [None]
  - PYREXIA [None]
  - RASH PAPULAR [None]
  - SKIN EXFOLIATION [None]
